FAERS Safety Report 15651837 (Version 2)
Quarter: 2018Q4

REPORT INFORMATION
  Report Type: Spontaneous
  Country: ES (occurrence: ES)
  Receive Date: 20181123
  Receipt Date: 20181130
  Transmission Date: 20190205
  Serious: Yes (Hospitalization)
  Sender: FDA-Public Use
  Company Number: PHHY2018ES164089

PATIENT

DRUGS (1)
  1. PAZOPANIB [Suspect]
     Active Substance: PAZOPANIB
     Indication: RENAL CANCER METASTATIC
     Dosage: 800 MG, UNK
     Route: 048
     Dates: start: 20180918, end: 20181015

REACTIONS (5)
  - Renal failure [Recovered/Resolved]
  - Hepatic enzyme abnormal [Recovering/Resolving]
  - Toxicity to various agents [Unknown]
  - Diarrhoea [Recovered/Resolved]
  - Hepatotoxicity [Recovered/Resolved]

NARRATIVE: CASE EVENT DATE: 20181106
